FAERS Safety Report 4358500-9 (Version None)
Quarter: 2004Q2

REPORT INFORMATION
  Report Type: 
  Country: None (occurrence: None)
  Receive Date: 20040514
  Receipt Date: 20040504
  Transmission Date: 20050107
  Serious: Yes (Death)
  Sender: FDA-Public Use
  Company Number: US-GLAXOSMITHKLINE-A0509772A

PATIENT

DRUGS (1)
  1. COREG [Suspect]
     Indication: CARDIOMYOPATHY
     Route: 048

REACTIONS (1)
  - SUDDEN DEATH [None]
